FAERS Safety Report 7539489-8 (Version None)
Quarter: 2011Q2

REPORT INFORMATION
  Report Type: 
  Country: None (occurrence: None)
  Receive Date: 20110609
  Receipt Date: 20110609
  Transmission Date: 20111010
  Serious: Yes (Hospitalization)
  Sender: FDA-Public Use
  Company Number: None

PATIENT
  Sex: Male
  Weight: 116.8 kg

DRUGS (6)
  1. COLACE [Concomitant]
  2. UVA THERAPY [Suspect]
     Indication: MYCOSIS FUNGOIDES
     Dosage: 3X WEEKLY
     Dates: start: 20110524, end: 20110603
  3. SYNTHROID [Concomitant]
  4. INTERFERON [Suspect]
     Indication: MYCOSIS FUNGOIDES
     Dosage: 1.5 UG/KG X 2
     Dates: start: 20110531
  5. INTERFERON [Suspect]
     Indication: MYCOSIS FUNGOIDES
     Dosage: 1.5 UG/KG X 2
     Dates: start: 20110524
  6. PREMARIN [Concomitant]

REACTIONS (3)
  - PYREXIA [None]
  - FATIGUE [None]
  - SUBCUTANEOUS ABSCESS [None]
